FAERS Safety Report 6498729-7 (Version None)
Quarter: 2009Q4

REPORT INFORMATION
  Report Type: 
  Country: None (occurrence: None)
  Receive Date: 20091127
  Receipt Date: 20090921
  Transmission Date: 20100525
  Serious: Yes (Hospitalization)
  Sender: FDA-Public Use
  Company Number: 286979

PATIENT
  Age: 62 Year
  Sex: Female
  Weight: 99.8 kg

DRUGS (5)
  1. NOVOLOG MIX 70/30 [Suspect]
     Indication: TYPE 2 DIABETES MELLITUS
     Dosage: 20 UNITS AM AND 10 UNITS PM, SUBCUTANEOUS
     Route: 058
     Dates: start: 20081101
  2. AMLODIPINE [Concomitant]
  3. AGGRENOX (ACETYLSALICTYLIC ACID, DIPYRIDAMOLE) [Concomitant]
  4. MULTI-VITAMINS [Concomitant]
  5. VITAMIN B COMPLEX /00003501/ (CALCIUM PANTOTHENATE, NICOTINAMIDE, PYRI [Concomitant]

REACTIONS (1)
  - BLOOD GLUCOSE INCREASED [None]
